FAERS Safety Report 6504163-3 (Version None)
Quarter: 2009Q4

REPORT INFORMATION
  Report Type: 
  Country: None (occurrence: None)
  Receive Date: 20091217
  Receipt Date: 20091209
  Transmission Date: 20100525
  Serious: Yes (Other)
  Sender: FDA-Public Use
  Company Number: US-MYLANLABS-2009S1021015

PATIENT
  Age: 30 Year
  Sex: Female
  Weight: 70.31 kg

DRUGS (2)
  1. LEVETIRACETAM [Suspect]
     Indication: CONVULSION
     Route: 048
     Dates: start: 20081101, end: 20081201
  2. LEVETIRACETAM [Suspect]
     Route: 048
     Dates: start: 20081101, end: 20081201

REACTIONS (4)
  - BALANCE DISORDER [None]
  - CONVULSION [None]
  - DRUG INEFFECTIVE FOR UNAPPROVED INDICATION [None]
  - FALL [None]
